FAERS Safety Report 18269145 (Version 5)
Quarter: 2022Q1

REPORT INFORMATION
  Report Type: Report from Study
  Country: AR (occurrence: AR)
  Receive Date: 20200915
  Receipt Date: 20220214
  Transmission Date: 20220423
  Serious: Yes (Death, Hospitalization, Other)
  Sender: FDA-Public Use
  Company Number: AR-002147023-NVSC2019AR054521

PATIENT

DRUGS (6)
  1. RUXOLITINIB [Suspect]
     Active Substance: RUXOLITINIB
     Indication: Primary myelofibrosis
     Dosage: 40 MG, QD (20 MG, BID, CAPSULE)
     Route: 048
     Dates: start: 20190801, end: 201911
  2. RUXOLITINIB [Suspect]
     Active Substance: RUXOLITINIB
     Dosage: 20 MG
     Route: 048
  3. RUXOLITINIB [Suspect]
     Active Substance: RUXOLITINIB
     Dosage: UNK
     Route: 065
     Dates: end: 202004
  4. RUXOLITINIB [Suspect]
     Active Substance: RUXOLITINIB
     Dosage: 40 MG
     Route: 048
     Dates: end: 202010
  5. METFORMIN [Concomitant]
     Active Substance: METFORMIN HYDROCHLORIDE
     Indication: Diabetes mellitus
     Dosage: UNK
     Route: 065
  6. ACETAMINOPHEN [Concomitant]
     Active Substance: ACETAMINOPHEN
     Indication: Pain
     Dosage: UNK
     Route: 065

REACTIONS (27)
  - Anaemia [Unknown]
  - Gastritis [Unknown]
  - Pneumonia [Fatal]
  - Anal incontinence [Fatal]
  - COVID-19 [Fatal]
  - Cardiac disorder [Unknown]
  - Depressed mood [Not Recovered/Not Resolved]
  - Diarrhoea [Fatal]
  - Dyspnoea [Fatal]
  - Discomfort [Unknown]
  - Pyrexia [Fatal]
  - Malignant neoplasm progression [Fatal]
  - Primary myelofibrosis [Fatal]
  - Hyperglycaemia [Fatal]
  - Spleen disorder [Unknown]
  - Product availability issue [Unknown]
  - Oedema peripheral [Unknown]
  - General physical health deterioration [Fatal]
  - Decreased appetite [Unknown]
  - Fatigue [Not Recovered/Not Resolved]
  - Decreased immune responsiveness [Unknown]
  - Red blood cell count decreased [Fatal]
  - Inappropriate schedule of product administration [Unknown]
  - Product dose omission issue [Unknown]
  - Ascites [Unknown]
  - Weight decreased [Unknown]
  - Umbilical hernia [Unknown]

NARRATIVE: CASE EVENT DATE: 20190801
